FAERS Safety Report 8130031-X (Version None)
Quarter: 2012Q1

REPORT INFORMATION
  Report Type: 
  Country: None (occurrence: None)
  Receive Date: 20120210
  Receipt Date: 20120202
  Transmission Date: 20120608
  Serious: Yes (Hospitalization)
  Sender: FDA-Public Use
  Company Number: BR-ROCHE-1007020

PATIENT
  Sex: Female

DRUGS (4)
  1. XOLAIR [Suspect]
     Indication: DYSPNOEA
  2. BUDESONIDE [Suspect]
     Indication: PRODUCT USED FOR UNKNOWN INDICATION
     Dosage: 12/400 MCG
     Route: 065
  3. XOLAIR [Suspect]
     Indication: BRONCHITIS
     Route: 058
     Dates: start: 20100101
  4. PREDNISONE [Concomitant]

REACTIONS (9)
  - ASTHMA [None]
  - BACK PAIN [None]
  - WHEEZING [None]
  - BRONCHITIS [None]
  - DYSPNOEA [None]
  - INSOMNIA [None]
  - FATIGUE [None]
  - CHEST PAIN [None]
  - DRUG INEFFECTIVE [None]
